FAERS Safety Report 5607087-9 (Version None)
Quarter: 2008Q1

REPORT INFORMATION
  Report Type: 
  Country: None (occurrence: None)
  Receive Date: 20080129
  Receipt Date: 20080117
  Transmission Date: 20080703
  Serious: Yes (Hospitalization)
  Sender: FDA-Public Use
  Company Number: US-PFIZER INC-2007056873

PATIENT
  Sex: Female

DRUGS (4)
  1. LYRICA [Suspect]
     Indication: POST HERPETIC NEURALGIA
  2. CARDIZEM [Suspect]
  3. ALL OTHER THERAPEUTIC PRODUCTS [Suspect]
  4. GLUCOPHAGE XR [Concomitant]

REACTIONS (6)
  - ABDOMINAL PAIN [None]
  - BLOOD PRESSURE FLUCTUATION [None]
  - CLUSTER HEADACHE [None]
  - DRUG INEFFECTIVE [None]
  - NAUSEA [None]
  - OEDEMA PERIPHERAL [None]
